FAERS Safety Report 21907310 (Version 1)
Quarter: 2023Q1

REPORT INFORMATION
  Report Type: Report from Study
  Country: US (occurrence: US)
  Receive Date: 20230125
  Receipt Date: 20230125
  Transmission Date: 20230417
  Serious: Yes (Other)
  Sender: FDA-Public Use
  Company Number: US-ABBVIE-4281022

PATIENT
  Sex: Female

DRUGS (2)
  1. HUMIRA [Suspect]
     Active Substance: ADALIMUMAB
     Indication: Rheumatoid arthritis
     Route: 058
     Dates: start: 20210909
  2. CARAFATE [Concomitant]
     Active Substance: SUCRALFATE
     Indication: Ulcer
     Route: 065

REACTIONS (7)
  - Gastric stapling [Unknown]
  - Ulcer [Unknown]
  - Gastrointestinal disorder [Not Recovered/Not Resolved]
  - Hernia [Unknown]
  - Malaise [Unknown]
  - Feeding disorder [Unknown]
  - Illness [Unknown]
